FAERS Safety Report 23476174 (Version 1)
Quarter: 2024Q1

REPORT INFORMATION
  Report Type: Report from Study
  Country: US (occurrence: US)
  Receive Date: 20240204
  Receipt Date: 20240204
  Transmission Date: 20240410
  Serious: No
  Sender: FDA-Public Use
  Company Number: US-EXELIXIS-CABO-23061711

PATIENT
  Sex: Female
  Weight: 108.12 kg

DRUGS (3)
  1. CABOMETYX [Suspect]
     Active Substance: CABOZANTINIB S-MALATE
     Indication: Renal cancer
     Dosage: 40 MG, QD
     Route: 048
     Dates: start: 20230222
  2. CABOMETYX [Suspect]
     Active Substance: CABOZANTINIB S-MALATE
     Dosage: 20 MG, QD (40 MG IN HALF)
     Route: 048
  3. CABOMETYX [Suspect]
     Active Substance: CABOZANTINIB S-MALATE
     Dosage: 20 MG, QD
     Route: 048

REACTIONS (12)
  - Heart rate increased [Unknown]
  - Pyrexia [Unknown]
  - Feeding disorder [Recovering/Resolving]
  - Hypersomnia [Unknown]
  - Pain [Unknown]
  - Blood pressure increased [Unknown]
  - Diarrhoea [Recovering/Resolving]
  - Dehydration [Unknown]
  - Fatigue [Unknown]
  - Thyroid hormones decreased [Unknown]
  - Blood potassium decreased [Unknown]
  - Wrong technique in product usage process [Unknown]
